FAERS Safety Report 4893355-5 (Version None)
Quarter: 2006Q1

REPORT INFORMATION
  Report Type: 
  Country: None (occurrence: None)
  Receive Date: 20060127
  Receipt Date: 20060116
  Transmission Date: 20060701
  Serious: Yes (Other)
  Sender: FDA-Public Use
  Company Number: GB-ABBOTT-06P-167-0322394-00

PATIENT
  Age: 37 Year
  Sex: Female

DRUGS (5)
  1. ERYTHROMYCIN BASE [Suspect]
     Indication: DRUG USE FOR UNKNOWN INDICATION
  2. PENICILLIN V [Concomitant]
     Indication: RASH
     Dates: start: 19920101, end: 19920101
  3. FLUCLOXACILLIN [Concomitant]
     Indication: DRUG USE FOR UNKNOWN INDICATION
  4. SUPRAX [Concomitant]
     Indication: DRUG USE FOR UNKNOWN INDICATION
  5. CETIRIZINE HYDROCHLORIDE [Concomitant]
     Indication: SWELLING
     Dates: start: 20050901, end: 20050901

REACTIONS (4)
  - FEELING HOT AND COLD [None]
  - RASH [None]
  - SKIN EXFOLIATION [None]
  - SWELLING [None]
